FAERS Safety Report 23337979 (Version 1)
Quarter: 2023Q4

REPORT INFORMATION
  Report Type: Spontaneous
  Country: US (occurrence: None)
  Receive Date: 20231222
  Receipt Date: 20231222
  Transmission Date: 20240109
  Serious: Yes (Disabling)
  Sender: FDA-Public Use
  Company Number: None

PATIENT
  Age: 25 Year
  Sex: Female
  Weight: 110.25 kg

DRUGS (1)
  1. BELBUCA [Suspect]
     Active Substance: BUPRENORPHINE HYDROCHLORIDE
     Indication: Pain
     Dosage: OTHER QUANTITY : 60 FILM;?FREQUENCY : EVERY 12 HOURS;?
     Route: 002
     Dates: start: 20211201

REACTIONS (1)
  - Dental caries [None]

NARRATIVE: CASE EVENT DATE: 20231211
